FAERS Safety Report 20732240 (Version 1)
Quarter: 2022Q2

REPORT INFORMATION
  Report Type: Spontaneous
  Country: US (occurrence: US)
  Receive Date: 20220420
  Receipt Date: 20220420
  Transmission Date: 20220721
  Serious: No
  Sender: FDA-Public Use
  Company Number: US-PFIZER INC-202101450684

PATIENT
  Sex: Female

DRUGS (1)
  1. NORVASC [Suspect]
     Active Substance: AMLODIPINE BESYLATE
     Dosage: 10 MG, 2X/DAY (TAKES TWO 10MG TABLETS, BY MOUTH A DAY.)
     Route: 048
     Dates: start: 1996

REACTIONS (2)
  - Off label use [Unknown]
  - Therapeutic response unexpected [Unknown]
